FAERS Safety Report 20988024 (Version 3)
Quarter: 2024Q1

REPORT INFORMATION
  Report Type: Spontaneous
  Country: US (occurrence: US)
  Receive Date: 20220621
  Receipt Date: 20240220
  Transmission Date: 20240409
  Serious: Yes (Other)
  Sender: FDA-Public Use
  Company Number: US-JNJFOC-20220632620

PATIENT
  Age: 30 Year
  Sex: Female

DRUGS (7)
  1. ELMIRON [Suspect]
     Active Substance: PENTOSAN POLYSULFATE SODIUM
     Indication: Cystitis interstitial
     Dosage: PER DAY
     Route: 048
     Dates: start: 20080520, end: 20100805
  2. ELMIRON [Suspect]
     Active Substance: PENTOSAN POLYSULFATE SODIUM
     Dosage: PER DAY
     Route: 048
     Dates: start: 20100925, end: 20120803
  3. ELMIRON [Suspect]
     Active Substance: PENTOSAN POLYSULFATE SODIUM
     Dosage: PER DAY
     Route: 048
     Dates: start: 20120914, end: 20170530
  4. ELMIRON [Suspect]
     Active Substance: PENTOSAN POLYSULFATE SODIUM
     Dosage: PER DAY
     Route: 048
     Dates: start: 20171101, end: 20171101
  5. ELMIRON [Suspect]
     Active Substance: PENTOSAN POLYSULFATE SODIUM
     Dosage: PER DAY
     Route: 048
     Dates: start: 20180212, end: 20191121
  6. SUMATRIPTAN [Concomitant]
     Active Substance: SUMATRIPTAN
     Indication: Migraine
     Dosage: TAKE 1 TABLET BY MOUTH AT ONSET OF  HEADACHE.
     Route: 048
     Dates: start: 20160720, end: 20210624
  7. MELOXICAM [Concomitant]
     Active Substance: MELOXICAM
     Indication: Arthralgia
     Dosage: TAKE 1 TAB MOUTH DAILY AS NEEDED FOR JOINT PAIN. TAKE WITH FOOD
     Route: 048
     Dates: start: 20180418, end: 20190312

REACTIONS (3)
  - Retinopathy [Unknown]
  - Pigmentary maculopathy [Unknown]
  - Off label use [Unknown]

NARRATIVE: CASE EVENT DATE: 20180212
